FAERS Safety Report 8073812-3 (Version None)
Quarter: 2012Q1

REPORT INFORMATION
  Report Type: 
  Country: None (occurrence: None)
  Receive Date: 20120126
  Receipt Date: 20120124
  Transmission Date: 20120608
  Serious: No
  Sender: FDA-Public Use
  Company Number: US-BAYER-2012-008285

PATIENT

DRUGS (1)
  1. AVELOX [Suspect]

REACTIONS (1)
  - ABDOMINAL DISCOMFORT [None]
